FAERS Safety Report 5014019-3 (Version None)
Quarter: 2006Q2

REPORT INFORMATION
  Report Type: 
  Country: None (occurrence: None)
  Receive Date: 20060526
  Receipt Date: 20060526
  Transmission Date: 20061013
  Serious: No
  Sender: FDA-Public Use
  Company Number: None

PATIENT

DRUGS (1)
  1. CYCLOBENZAPRINE HCL [Suspect]

REACTIONS (3)
  - POOR QUALITY DRUG ADMINISTERED [None]
  - STOMACH DISCOMFORT [None]
  - THERAPEUTIC PRODUCT CONTAMINATION [None]
